FAERS Safety Report 9644031 (Version 2)
Quarter: 2013Q4

REPORT INFORMATION
  Report Type: Spontaneous
  Country: JP (occurrence: JP)
  Receive Date: 20131024
  Receipt Date: 20131024
  Transmission Date: 20140711
  Serious: Yes (Other)
  Sender: FDA-Public Use
  Company Number: PHHY2013JP103128

PATIENT
  Age: 48 Year
  Sex: Female

DRUGS (3)
  1. SLOW K [Suspect]
     Indication: HYPOKALAEMIA
     Dosage: 1800 MG, DAILY
     Route: 048
  2. ATORVASTATIN [Suspect]
     Dosage: 10 MG, DAILY
     Route: 048
  3. TURMERIC [Concomitant]

REACTIONS (3)
  - Urine potassium decreased [Unknown]
  - Urine sodium decreased [Unknown]
  - Urine chloride increased [Unknown]
